FAERS Safety Report 14672481 (Version 2)
Quarter: 2018Q2

REPORT INFORMATION
  Report Type: Spontaneous
  Country: US (occurrence: US)
  Receive Date: 20180323
  Receipt Date: 20180608
  Transmission Date: 20180711
  Serious: Yes (Hospitalization, Other)
  Sender: FDA-Public Use
  Company Number: US-PFIZER INC-2018116068

PATIENT
  Age: 34 Year
  Sex: Female

DRUGS (7)
  1. SERTRALINE HCL [Suspect]
     Active Substance: SERTRALINE HYDROCHLORIDE
     Indication: DEPRESSION
  2. SERTRALINE HCL [Suspect]
     Active Substance: SERTRALINE HYDROCHLORIDE
     Indication: ANXIETY
     Dosage: 200 MG, 1X/DAY [QAM]
     Route: 048
     Dates: start: 201402, end: 20180326
  3. SUBUTEX [Concomitant]
     Active Substance: BUPRENORPHINE HYDROCHLORIDE
     Indication: INTERVERTEBRAL DISC PROTRUSION
     Dosage: 8 MG, 4X/DAY
     Route: 060
     Dates: start: 201412
  4. SUBUTEX [Concomitant]
     Active Substance: BUPRENORPHINE HYDROCHLORIDE
     Indication: PAIN
     Dosage: 8 MG, 4X/DAY
     Route: 060
     Dates: start: 201508
  5. SUBUTEX [Concomitant]
     Active Substance: BUPRENORPHINE HYDROCHLORIDE
     Indication: DRUG USE DISORDER
  6. SERTRALINE HCL [Suspect]
     Active Substance: SERTRALINE HYDROCHLORIDE
     Indication: ANTIDEPRESSANT THERAPY
     Dosage: 100 MG, DAILY (50MG X 2)
     Route: 048
     Dates: end: 20180228
  7. IBUPROFEN. [Concomitant]
     Active Substance: IBUPROFEN
     Indication: PAIN
     Dosage: 800 MG, AS NEEDED
     Route: 048

REACTIONS (17)
  - Drug withdrawal syndrome [Recovered/Resolved]
  - Insomnia [Unknown]
  - Tremor [Unknown]
  - Abnormal behaviour [Not Recovered/Not Resolved]
  - Delirium [Recovered/Resolved]
  - Logorrhoea [Unknown]
  - Paranoia [Unknown]
  - Decreased appetite [Recovered/Resolved with Sequelae]
  - Agitation [Unknown]
  - Feeling of body temperature change [Unknown]
  - Bowel movement irregularity [Unknown]
  - Anxiety [Unknown]
  - Syncope [Recovered/Resolved with Sequelae]
  - Aggression [Unknown]
  - Weight decreased [Recovered/Resolved with Sequelae]
  - Panic attack [Unknown]
  - Condition aggravated [Unknown]

NARRATIVE: CASE EVENT DATE: 201802
